FAERS Safety Report 6854747-8 (Version None)
Quarter: 2010Q3

REPORT INFORMATION
  Report Type: 
  Country: None (occurrence: None)
  Receive Date: 20100717
  Receipt Date: 20080112
  Transmission Date: 20110219
  Serious: No
  Sender: FDA-Public Use
  Company Number: US-PFIZER INC-2008004312

PATIENT
  Sex: Male
  Weight: 97.5 kg

DRUGS (7)
  1. CHANTIX [Suspect]
     Indication: SMOKING CESSATION THERAPY
     Route: 048
     Dates: start: 20080105, end: 20080109
  2. PRINZIDE [Concomitant]
     Indication: HYPERTENSION
  3. LIPITOR [Concomitant]
  4. ATROVENT [Concomitant]
  5. FLOVENT [Concomitant]
  6. NASACORT [Concomitant]
     Route: 045
  7. ACETYLSALICYLIC ACID [Concomitant]

REACTIONS (1)
  - NIGHTMARE [None]
